FAERS Safety Report 9413649 (Version 1)
Quarter: 2013Q3

REPORT INFORMATION
  Report Type: Spontaneous
  Country: US (occurrence: US)
  Receive Date: 20130722
  Receipt Date: 20130722
  Transmission Date: 20140515
  Serious: Yes (Hospitalization, Other)
  Sender: FDA-Public Use
  Company Number: US-GILEAD-2013-0076887

PATIENT
  Age: 50 Year
  Sex: Male

DRUGS (9)
  1. STRIBILD [Suspect]
     Indication: HIV INFECTION
     Dosage: UNK
     Dates: end: 20130603
  2. TRUVADA [Concomitant]
     Indication: HIV INFECTION
  3. ISENTRESS [Concomitant]
     Indication: PRODUCT USED FOR UNKNOWN INDICATION
     Dosage: UNK
  4. TACROLIMUS [Concomitant]
     Indication: PRODUCT USED FOR UNKNOWN INDICATION
     Dosage: UNK
     Dates: end: 20130604
  5. TACROLIMUS [Concomitant]
     Dosage: UNK
     Dates: start: 20130613
  6. EXPIREX [Concomitant]
     Indication: PRODUCT USED FOR UNKNOWN INDICATION
  7. PROVENTIL                          /00139501/ [Concomitant]
     Indication: PRODUCT USED FOR UNKNOWN INDICATION
     Dosage: UNK, PRN
  8. VIAGRA [Concomitant]
     Indication: PRODUCT USED FOR UNKNOWN INDICATION
     Dosage: UNK, PRN
  9. COUMADINE [Concomitant]
     Indication: PRODUCT USED FOR UNKNOWN INDICATION

REACTIONS (7)
  - Venous thrombosis [Recovering/Resolving]
  - Toxicity to various agents [Recovered/Resolved]
  - Nephropathy toxic [Recovered/Resolved]
  - Renal failure acute [Recovered/Resolved]
  - Blood creatinine increased [Recovered/Resolved]
  - Headache [Unknown]
  - Diarrhoea [Unknown]
